FAERS Safety Report 21232789 (Version 3)
Quarter: 2022Q4

REPORT INFORMATION
  Report Type: Spontaneous
  Country: US (occurrence: US)
  Receive Date: 20220819
  Receipt Date: 20221025
  Transmission Date: 20230113
  Serious: Yes (Other)
  Sender: FDA-Public Use
  Company Number: US-PFIZER INC-202201065028

PATIENT
  Age: 59 Year
  Sex: Male
  Weight: 96.16 kg

DRUGS (2)
  1. XELJANZ XR [Suspect]
     Active Substance: TOFACITINIB CITRATE
     Indication: Rheumatoid arthritis
     Dosage: 11 MG, 1X/DAY (ONE TABLET ONCE A DAY IN THE MORNING)
     Dates: start: 20220719, end: 20220813
  2. HUMIRA [Suspect]
     Active Substance: ADALIMUMAB
     Indication: Rheumatoid arthritis
     Dosage: UNK, WEEKLY
     Route: 058

REACTIONS (10)
  - Rheumatoid arthritis [Unknown]
  - Hyperhidrosis [Not Recovered/Not Resolved]
  - Sensitivity to weather change [Unknown]
  - Confusional state [Unknown]
  - Joint range of motion decreased [Unknown]
  - Temperature intolerance [Unknown]
  - Hyperhidrosis [Not Recovered/Not Resolved]
  - Burning sensation [Unknown]
  - Pain in extremity [Unknown]
  - Hypertension [Unknown]

NARRATIVE: CASE EVENT DATE: 20220101
